FAERS Safety Report 9958997 (Version 2)
Quarter: 2014Q1

REPORT INFORMATION
  Report Type: Report from Study
  Country: US (occurrence: US)
  Receive Date: 20140305
  Receipt Date: 20140305
  Transmission Date: 20141002
  Serious: Yes (Other)
  Sender: FDA-Public Use
  Company Number: US-ABBVIE-13P-163-1103936-00

PATIENT
  Age: 53 Year
  Sex: Female
  Weight: 83.08 kg

DRUGS (10)
  1. HUMIRA [Suspect]
     Indication: PSORIASIS
     Dates: start: 2003
  2. HUMIRA [Suspect]
     Indication: PSORIATIC ARTHROPATHY
  3. HUMIRA [Suspect]
     Indication: PSORIASIS
     Dates: end: 2008
  4. HUMIRA [Suspect]
     Indication: PSORIATIC ARTHROPATHY
  5. PREVASTIN [Concomitant]
     Indication: PRODUCT USED FOR UNKNOWN INDICATION
  6. LISINOPRIL [Concomitant]
     Indication: HYPERTENSION
  7. UNKNOWN MEDICATION [Concomitant]
     Indication: PAIN
  8. UNKNOWN MEDICATION [Concomitant]
     Indication: PAIN
  9. LEVOTHYROXINE [Concomitant]
     Indication: HYPOTHYROIDISM
  10. LYRICA [Concomitant]
     Indication: PAIN

REACTIONS (2)
  - Staphylococcal infection [Recovered/Resolved]
  - Staphylococcal infection [Not Recovered/Not Resolved]
